FAERS Safety Report 6788632-7 (Version None)
Quarter: 2010Q2

REPORT INFORMATION
  Report Type: 
  Country: None (occurrence: None)
  Receive Date: 20100623
  Receipt Date: 20080424
  Transmission Date: 20101027
  Serious: No
  Sender: FDA-Public Use
  Company Number: US-PFIZER INC-2008036437

PATIENT
  Sex: Female

DRUGS (3)
  1. GEODON [Suspect]
  2. PROVIGIL [Concomitant]
     Indication: SEDATION
  3. RISPERDAL [Concomitant]

REACTIONS (1)
  - SOMNOLENCE [None]
